FAERS Safety Report 17528920 (Version 1)
Quarter: 2020Q1

REPORT INFORMATION
  Report Type: Spontaneous
  Country: IN (occurrence: IN)
  Receive Date: 20200311
  Receipt Date: 20200311
  Transmission Date: 20200409
  Serious: Yes (Death, Life-Threatening, Other)
  Sender: FDA-Public Use
  Company Number: IN-FRESENIUS KABI-FK202002385

PATIENT
  Age: 46 Year
  Sex: Male

DRUGS (5)
  1. ETHAMBUTOL [Concomitant]
     Active Substance: ETHAMBUTOL HYDROCHLORIDE
     Indication: ANTIBIOTIC THERAPY
     Dosage: UNKNOWN
     Route: 065
  2. COLISTIMETHATE (MANUFACTURER UNKNOWN) [Suspect]
     Active Substance: COLISTIMETHATE SODIUM
     Indication: ACINETOBACTER INFECTION
     Route: 042
  3. ISONIAZID. [Concomitant]
     Active Substance: ISONIAZID
     Indication: ANTIBIOTIC THERAPY
     Dosage: UNKNOWN
     Route: 065
  4. RIFAMPICIN [Concomitant]
     Active Substance: RIFAMPIN
     Indication: ANTIBIOTIC THERAPY
     Dosage: UNKNOWN
     Route: 065
  5. PYRAZINAMIDE. [Concomitant]
     Active Substance: PYRAZINAMIDE
     Indication: ANTIBIOTIC THERAPY
     Dosage: UNKNOWN
     Route: 065

REACTIONS (5)
  - Sepsis [Unknown]
  - Disseminated intravascular coagulation [Unknown]
  - Septic shock [Fatal]
  - Bartter^s syndrome [Recovered/Resolved]
  - Urinary tract infection [Unknown]
